FAERS Safety Report 15606971 (Version 1)
Quarter: 2018Q4

REPORT INFORMATION
  Report Type: Spontaneous
  Country: US (occurrence: US)
  Receive Date: 20181111
  Receipt Date: 20181111
  Transmission Date: 20190205
  Serious: Yes (Hospitalization, Disabling)
  Sender: FDA-Public Use
  Company Number: None

PATIENT
  Age: 4 Week
  Sex: Female
  Weight: 2.25 kg

DRUGS (4)
  1. POLYETHYLENE GLYCOL 3350, USP POWDER FOR ORAL SOLUTION [Suspect]
     Active Substance: POLYETHYLENE GLYCOL 3350
     Indication: CONSTIPATION
     Dosage: ?          QUANTITY:255 OUNCE(S);?
     Route: 048
     Dates: start: 20161118, end: 20181102
  2. CLARITIN [Concomitant]
     Active Substance: LORATADINE
  3. ZYRTEC [Concomitant]
     Active Substance: CETIRIZINE HYDROCHLORIDE
  4. MIRALAX [Concomitant]
     Active Substance: POLYETHYLENE GLYCOL 3350

REACTIONS (3)
  - Screaming [None]
  - Anger [None]
  - Hostility [None]

NARRATIVE: CASE EVENT DATE: 20161118
